FAERS Safety Report 7902657-7 (Version None)
Quarter: 2011Q4

REPORT INFORMATION
  Report Type: 
  Country: None (occurrence: None)
  Receive Date: 20111108
  Receipt Date: 20111013
  Transmission Date: 20120403
  Serious: Yes (Hospitalization, Other)
  Sender: FDA-Public Use
  Company Number: PHHY2011BE96717

PATIENT
  Sex: Female

DRUGS (6)
  1. IMURAN [Concomitant]
     Dosage: UNK UKN, UNK
  2. CERTICAN [Concomitant]
     Dosage: UNK UKN, UNK
  3. SANDIMMUNE [Suspect]
     Indication: RENAL TRANSPLANT
     Dosage: UNK UKN, UNK
  4. MYCOPHENOLATE MOFETIL (CELLCEPT) [Concomitant]
     Dosage: UNK UKN, UNK
  5. ADALAT [Concomitant]
     Dosage: UNK UKN, UNK
  6. MYCOPHENOLATE MOFETIL [Concomitant]
     Dosage: UNK UKN, UNK

REACTIONS (29)
  - ARTERIOVENOUS FISTULA [None]
  - OSTEOPOROSIS [None]
  - HYPERCHOLESTEROLAEMIA [None]
  - GINGIVAL HYPERTROPHY [None]
  - VERTIGO POSITIONAL [None]
  - VITREOUS DETACHMENT [None]
  - CAROTID BRUIT [None]
  - ESCHERICHIA URINARY TRACT INFECTION [None]
  - BASAL CELL CARCINOMA [None]
  - OEDEMA [None]
  - HYPERPARATHYROIDISM TERTIARY [None]
  - UROSEPSIS [None]
  - RENAL ARTERY STENOSIS [None]
  - CYST [None]
  - PLEURAL DISORDER [None]
  - HERPES ZOSTER [None]
  - DEAFNESS BILATERAL [None]
  - LOWER LIMB FRACTURE [None]
  - MITRAL VALVE INCOMPETENCE [None]
  - LYMPHOMA [None]
  - HERPES SIMPLEX [None]
  - DIARRHOEA [None]
  - GASTROENTERITIS [None]
  - ARTHRITIS REACTIVE [None]
  - SECONDARY HYPERTENSION [None]
  - FIBROMUSCULAR DYSPLASIA [None]
  - ARTERIOSCLEROSIS [None]
  - BREAST CANCER [None]
  - TOXICITY TO VARIOUS AGENTS [None]
